FAERS Safety Report 17590476 (Version 1)
Quarter: 2020Q1

REPORT INFORMATION
  Report Type: Spontaneous
  Country: US (occurrence: US)
  Receive Date: 20200325
  Receipt Date: 20200325
  Transmission Date: 20200409
  Serious: No
  Sender: FDA-Public Use
  Company Number: None

PATIENT
  Sex: Male

DRUGS (20)
  1. AZITHYROMYCIN [Concomitant]
  2. OXYCODONE AND ACETAMINOPHEN [Concomitant]
     Active Substance: ACETAMINOPHEN\OXYCODONE HYDROCHLORIDE
  3. CELECOXIB. [Concomitant]
     Active Substance: CELECOXIB
  4. CHOLESTYRAM [Concomitant]
     Active Substance: CHOLESTYRAMINE
  5. FUROSEMIDE. [Concomitant]
     Active Substance: FUROSEMIDE
  6. METHYLPRED [Concomitant]
     Active Substance: METHYLPREDNISOLONE
  7. ALBUTEROL NEB [Concomitant]
     Active Substance: ALBUTEROL
  8. CIPROFLOXACIN. [Concomitant]
     Active Substance: CIPROFLOXACIN
  9. BUDESONIDE. [Concomitant]
     Active Substance: BUDESONIDE
  10. GABAPENTIN. [Concomitant]
     Active Substance: GABAPENTIN
  11. METRONIDAZOL [Concomitant]
     Active Substance: METRONIDAZOLE
  12. MORPHINE SUL [Concomitant]
     Active Substance: MORPHINE SULFATE
  13. HUMIRA [Suspect]
     Active Substance: ADALIMUMAB
     Indication: COLITIS ULCERATIVE
     Route: 058
     Dates: start: 20200219
  14. ADVAIR DISKU, ALBUTEROL AER [Concomitant]
  15. HYDROCO/APAP [Concomitant]
     Active Substance: ACETAMINOPHEN\HYDROCODONE
  16. HYDROCORT AC [Concomitant]
  17. PRAVASTATIN. [Concomitant]
     Active Substance: PRAVASTATIN
  18. TRAMADOL HCL [Concomitant]
     Active Substance: TRAMADOL HYDROCHLORIDE
  19. VANCOMYCIN [Concomitant]
     Active Substance: VANCOMYCIN
  20. DICLOFENAC [Concomitant]
     Active Substance: DICLOFENAC

REACTIONS (2)
  - Thrombosis [None]
  - Therapy cessation [None]
